FAERS Safety Report 9797072 (Version 1)
Quarter: 2014Q1

REPORT INFORMATION
  Report Type: Spontaneous
  Country: TN (occurrence: TN)
  Receive Date: 20140105
  Receipt Date: 20140105
  Transmission Date: 20141002
  Serious: Yes (Other)
  Sender: FDA-Public Use
  Company Number: TN-MYLANLABS-2013S1029001

PATIENT
  Age: 57 Year
  Sex: Male

DRUGS (2)
  1. ETOPOSIDE [Suspect]
     Indication: PANCREATIC CARCINOMA METASTATIC
     Dosage: 100MG/M2/DAY ON DAY 1-3 EVERY 21 DAYS
     Route: 065
  2. CISPLATIN [Concomitant]
     Indication: PANCREATIC CARCINOMA METASTATIC
     Dosage: 100MG/M2 ON DAY 1 EVERY 21 DAYS
     Route: 065

REACTIONS (1)
  - Atrial fibrillation [Recovered/Resolved]
